FAERS Safety Report 22166158 (Version 1)
Quarter: 2023Q1

REPORT INFORMATION
  Report Type: Spontaneous
  Country: US (occurrence: None)
  Receive Date: 20230331
  Receipt Date: 20230331
  Transmission Date: 20230417
  Serious: No
  Sender: FDA-Public Use
  Company Number: None

PATIENT
  Age: 66 Year
  Sex: Female
  Weight: 60.33 kg

DRUGS (19)
  1. PAXLOVID [Suspect]
     Active Substance: NIRMATRELVIR\RITONAVIR
     Indication: SARS-CoV-2 test positive
     Dosage: FREQUENCY : TWICE A DAY;?
     Dates: start: 20230304, end: 20230307
  2. CYCLOBENZAPRINE [Concomitant]
     Active Substance: CYCLOBENZAPRINE
  3. LOSARTAN [Concomitant]
     Active Substance: LOSARTAN
  4. AMLODIPINE [Concomitant]
     Active Substance: AMLODIPINE BESYLATE
  5. CYCLOSPORINE [Concomitant]
     Active Substance: CYCLOSPORINE
  6. Loteprednol Ophthalmic Suspension [Concomitant]
  7. HYDROXYCHLOROQUINE [Concomitant]
     Active Substance: HYDROXYCHLOROQUINE
  8. Golimumab Solution Injection [Concomitant]
  9. Triamcinolone Ointment [Concomitant]
  10. Flucinolone External Solution [Concomitant]
  11. TACROLIMUS [Concomitant]
     Active Substance: TACROLIMUS
  12. Clobetasol External Solution [Concomitant]
  13. FEXOFENADINE [Concomitant]
     Active Substance: FEXOFENADINE HYDROCHLORIDE
  14. Hypromellose (GENTEAL TEARS SEVERE GEL OUT) [Concomitant]
  15. ACETAMINOPHEN [Concomitant]
     Active Substance: ACETAMINOPHEN
  16. VITAMIN D3 [Concomitant]
     Active Substance: CHOLECALCIFEROL
  17. FERROUS SULFATE [Concomitant]
     Active Substance: FERROUS SULFATE
  18. Polyethylene Glycol Powder for Solution [Concomitant]
  19. Orgain Brand Organic Protein w/probiotics-Protein Powder [Concomitant]

REACTIONS (5)
  - Rash pruritic [None]
  - Rash [None]
  - Rash [None]
  - Intentional dose omission [None]
  - Paraesthesia oral [None]

NARRATIVE: CASE EVENT DATE: 20230304
